FAERS Safety Report 8135560-0 (Version None)
Quarter: 2012Q1

REPORT INFORMATION
  Report Type: 
  Country: None (occurrence: None)
  Receive Date: 20120214
  Receipt Date: 20120206
  Transmission Date: 20120608
  Serious: Yes (Other)
  Sender: FDA-Public Use
  Company Number: US-BAYER-2011-042229

PATIENT
  Age: 34 Year
  Sex: Female
  Weight: 79.365 kg

DRUGS (8)
  1. METHYLPREDNISOLONE [Concomitant]
     Dosage: 4 MG DOSEPACK
     Dates: start: 20040920
  2. IBUPROFEN [Concomitant]
     Indication: PAIN
     Dosage: UNK
     Dates: start: 19960101
  3. VALTREX [Concomitant]
     Dosage: 1 G, TID
     Route: 048
     Dates: start: 20040920
  4. TOBRAMYCIN [Concomitant]
     Dosage: 1 GTT, QID, LEFT EYE
     Route: 047
     Dates: start: 20041008
  5. YASMIN [Suspect]
     Indication: CONTRACEPTION
     Dosage: UNK
     Route: 048
     Dates: start: 20030201, end: 20060601
  6. ZOVIRAX [Concomitant]
     Dosage: 5% CREAM, TID
     Dates: start: 20040920
  7. SYNTHROID [Concomitant]
     Indication: THYROID DISORDER
     Dosage: UNK
     Dates: start: 19970101
  8. LORTAB [Concomitant]
     Indication: PAIN
     Dosage: UNK
     Dates: start: 20000101, end: 20100101

REACTIONS (7)
  - GENERAL PHYSICAL HEALTH DETERIORATION [None]
  - GALLBLADDER DISORDER [None]
  - ANXIETY [None]
  - SCAR [None]
  - ABDOMINAL PAIN [None]
  - EMOTIONAL DISTRESS [None]
  - PAIN [None]
